FAERS Safety Report 16273458 (Version 1)
Quarter: 2019Q2

REPORT INFORMATION
  Report Type: Spontaneous
  Country: US (occurrence: US)
  Receive Date: 20190503
  Receipt Date: 20190503
  Transmission Date: 20190711
  Serious: No
  Sender: FDA-Public Use
  Company Number: US-RADIUS HEALTH INC.-2019US001050

PATIENT
  Sex: Female

DRUGS (2)
  1. ORENCIA [Concomitant]
     Active Substance: ABATACEPT
     Indication: RHEUMATOID ARTHRITIS
     Dosage: STARTED EVERY OTHER WEEK AND THEN ONCE A MONTH
     Route: 042
  2. TYMLOS [Suspect]
     Active Substance: ABALOPARATIDE
     Indication: OSTEOPOROSIS POSTMENOPAUSAL
     Dosage: 80 MCG, DAILY
     Route: 058

REACTIONS (7)
  - Speech disorder [Recovering/Resolving]
  - Nasal congestion [Recovering/Resolving]
  - Product dose omission [Unknown]
  - Cough [Recovering/Resolving]
  - Sneezing [Recovering/Resolving]
  - Wrong technique in product usage process [Recovering/Resolving]
  - Dyspnoea [Unknown]
